FAERS Safety Report 8541368-4 (Version None)
Quarter: 2012Q3

REPORT INFORMATION
  Report Type: 
  Country: None (occurrence: None)
  Receive Date: 20120726
  Receipt Date: 20110825
  Transmission Date: 20120928
  Serious: No
  Sender: FDA-Public Use
  Company Number: US-MYLANLABS-2011S1017799

PATIENT
  Age: 30 Year
  Sex: Male

DRUGS (2)
  1. PAROXETINE HCL [Suspect]
     Indication: DEPRESSION
     Route: 048
     Dates: start: 20110701
  2. BENADRYL [Concomitant]
     Indication: SEASONAL ALLERGY

REACTIONS (2)
  - RASH [None]
  - PRURITUS [None]
